FAERS Safety Report 4958191-X (Version None)
Quarter: 2006Q1

REPORT INFORMATION
  Report Type: 
  Country: None (occurrence: None)
  Receive Date: 20060330
  Receipt Date: 20060320
  Transmission Date: 20060701
  Serious: Yes (Other)
  Sender: FDA-Public Use
  Company Number: US-ROCHE-441076

PATIENT
  Age: 71 Year
  Sex: Female
  Weight: 55.8 kg

DRUGS (1)
  1. BONIVA [Suspect]
     Indication: DRUG USE FOR UNKNOWN INDICATION
     Route: 065
     Dates: start: 20051208, end: 20060116

REACTIONS (1)
  - ERYTHEMA MULTIFORME [None]
